FAERS Safety Report 6429736-8 (Version None)
Quarter: 2009Q4

REPORT INFORMATION
  Report Type: 
  Country: None (occurrence: None)
  Receive Date: 20091103
  Receipt Date: 20091019
  Transmission Date: 20100525
  Serious: Yes (Hospitalization)
  Sender: FDA-Public Use
  Company Number: 02100-JPN-07-0019

PATIENT
  Age: 73 Year
  Sex: Female
  Weight: 55.3 kg

DRUGS (4)
  1. PLETAL [Suspect]
     Indication: CEREBRAL INFARCTION
     Dosage: 100 MG, BID ORAL
     Route: 048
     Dates: start: 20050507, end: 20070108
  2. ADALAT-CR (NIEFDIPINE) [Concomitant]
  3. CANDESARTAN CILEXETIL [Concomitant]
  4. PRAVASTATIN SODIUM [Concomitant]

REACTIONS (4)
  - DEHYDRATION [None]
  - GASTROENTERITIS [None]
  - GLUCOSE TOLERANCE IMPAIRED [None]
  - INTRAVENTRICULAR HAEMORRHAGE [None]
